FAERS Safety Report 10178972 (Version 1)
Quarter: 2014Q2

REPORT INFORMATION
  Report Type: Spontaneous
  Country: US (occurrence: US)
  Receive Date: 20140519
  Receipt Date: 20140519
  Transmission Date: 20141212
  Serious: No
  Sender: FDA-Public Use
  Company Number: US-BIOGENIDEC-2014BI041293

PATIENT
  Sex: Female

DRUGS (1)
  1. TECFIDERA [Suspect]
     Indication: MULTIPLE SCLEROSIS

REACTIONS (7)
  - Dizziness [Unknown]
  - Pain [Unknown]
  - Back pain [Unknown]
  - Paraesthesia [Unknown]
  - Flushing [Unknown]
  - Hot flush [Unknown]
  - Nausea [Unknown]
